FAERS Safety Report 19738745 (Version 1)
Quarter: 2021Q3

REPORT INFORMATION
  Report Type: Spontaneous
  Country: US (occurrence: US)
  Receive Date: 20210823
  Receipt Date: 20210823
  Transmission Date: 20211014
  Serious: No
  Sender: FDA-Public Use
  Company Number: US-BRAINTREE LABORATORIES, INC.-2021BTE00137

PATIENT
  Age: 80 Year
  Sex: Female
  Weight: 54.42 kg

DRUGS (3)
  1. GOLYTELY [Suspect]
     Active Substance: POLYETHYLENE GLYCOL 3350\POTASSIUM CHLORIDE\SODIUM BICARBONATE\SODIUM CHLORIDE\SODIUM SULFATE
     Indication: BOWEL MOVEMENT IRREGULARITY
     Dosage: {4 L, 1X
     Route: 048
     Dates: start: 20210226, end: 20210226
  2. NEURONTIN [Concomitant]
     Active Substance: GABAPENTIN
     Dosage: 200 MG, A DAY
  3. NORVASC [Concomitant]
     Active Substance: AMLODIPINE BESYLATE
     Dosage: UNK AT NIGHT

REACTIONS (5)
  - Abdominal distension [Unknown]
  - Nerve compression [Unknown]
  - Wrong technique in product usage process [Recovered/Resolved]
  - Dizziness [Recovering/Resolving]
  - Hypoaesthesia [Not Recovered/Not Resolved]

NARRATIVE: CASE EVENT DATE: 20210226
